FAERS Safety Report 8062871-X (Version None)
Quarter: 2012Q1

REPORT INFORMATION
  Report Type: 
  Country: None (occurrence: None)
  Receive Date: 20120123
  Receipt Date: 20120118
  Transmission Date: 20120608
  Serious: Yes (Other)
  Sender: FDA-Public Use
  Company Number: GB-TEVA-318324ISR

PATIENT
  Age: 63 Year
  Sex: Male

DRUGS (13)
  1. SIMVASTATIN [Concomitant]
  2. BISOPROLOL [Concomitant]
  3. DIGOXIN [Concomitant]
  4. TRAMADOL HCL [Concomitant]
  5. FUROSEMIDE [Concomitant]
  6. COLCHICINE [Concomitant]
  7. LOPRAZOLAM [Concomitant]
  8. ALLOPURINOL [Concomitant]
  9. LANSOPRAZOLE [Concomitant]
  10. WARFARIN SODIUM [Concomitant]
  11. PREDNISOLONE [Concomitant]
  12. RAMIPRIL [Suspect]
     Dosage: INCREASED FROM 5MG OM, TO 5MG OM + 2.5MG ON
     Route: 048
  13. ACETAMINOPHEN AND CODEINE PHOSPHATE [Concomitant]

REACTIONS (1)
  - GOUT [None]
